FAERS Safety Report 7973748-X (Version None)
Quarter: 2011Q4

REPORT INFORMATION
  Report Type: 
  Country: None (occurrence: None)
  Receive Date: 20111125
  Receipt Date: 20110404
  Transmission Date: 20120403
  Serious: Yes (Hospitalization)
  Sender: FDA-Public Use
  Company Number: SPV1-2011-00074

PATIENT
  Age: 4 Year
  Sex: Male
  Weight: 19 kg

DRUGS (2)
  1. CARBATROL [Suspect]
     Indication: CONVULSION
     Dosage: 100 MG, 2X/DAY:BID, ORAL ; 200 MG, 2X/DAY:BID, ORAL
     Route: 048
     Dates: start: 20110101, end: 20110101
  2. CARBATROL [Suspect]
     Indication: CONVULSION
     Dosage: 100 MG, 2X/DAY:BID, ORAL ; 200 MG, 2X/DAY:BID, ORAL
     Route: 048
     Dates: start: 20100101, end: 20110101

REACTIONS (2)
  - CONVULSION [None]
  - FUNCTIONAL GASTROINTESTINAL DISORDER [None]
